FAERS Safety Report 26139102 (Version 1)
Quarter: 2025Q4

REPORT INFORMATION
  Report Type: Spontaneous
  Country: US (occurrence: US)
  Receive Date: 20251210
  Receipt Date: 20251210
  Transmission Date: 20260117
  Serious: Yes (Other)
  Sender: EXELIXIS
  Company Number: US-EXELIXIS-EXL-2025-013780

PATIENT
  Age: 65 Year
  Sex: Female

DRUGS (4)
  1. CABOMETYX [Suspect]
     Active Substance: CABOZANTINIB S-MALATE
     Indication: Neuroendocrine tumour
     Dosage: 60 MG, QD
     Route: 048
     Dates: start: 202504
  2. CABOMETYX [Suspect]
     Active Substance: CABOZANTINIB S-MALATE
     Indication: Metastases to liver
     Dosage: 60 MG, QD
     Route: 048
     Dates: start: 202509
  3. LANREOTIDE [Concomitant]
     Active Substance: LANREOTIDE
     Indication: Neuroendocrine tumour
  4. LANREOTIDE [Concomitant]
     Active Substance: LANREOTIDE
     Indication: Metastases to liver

REACTIONS (5)
  - Bone neoplasm [Unknown]
  - Memory impairment [Not Recovered/Not Resolved]
  - Hair colour changes [Not Recovered/Not Resolved]
  - Alopecia [Not Recovered/Not Resolved]
  - Confusional state [Unknown]

NARRATIVE: CASE EVENT DATE: 20251001
